FAERS Safety Report 5630696-8 (Version None)
Quarter: 2008Q1

REPORT INFORMATION
  Report Type: 
  Country: None (occurrence: None)
  Receive Date: 20080213
  Receipt Date: 20080201
  Transmission Date: 20080703
  Serious: Yes (Other)
  Sender: FDA-Public Use
  Company Number: 2007336512

PATIENT
  Age: 74 Year
  Sex: Female
  Weight: 81.6475 kg

DRUGS (2)
  1. NEOSPORIN LIP THERAPY (ALLANTOIN, PRAMOXINE HYDROCHLORIDE) [Suspect]
     Indication: ORAL HERPES
     Dosage: TWICE AT BEDTIME, TOPICAL
     Route: 061
     Dates: start: 20071121, end: 20071125
  2. ACETAMINOPHEN [Concomitant]

REACTIONS (4)
  - COUGH [None]
  - LARYNGEAL OEDEMA [None]
  - SNEEZING [None]
  - TRACHEAL OEDEMA [None]
